FAERS Safety Report 17439822 (Version 1)
Quarter: 2020Q1

REPORT INFORMATION
  Report Type: Spontaneous
  Country: US (occurrence: US)
  Receive Date: 20200204
  Receipt Date: 20200204
  Transmission Date: 20200409
  Serious: No
  Sender: FDA-Public Use
  Company Number: None

PATIENT
  Age: 69 Year
  Sex: Female

DRUGS (1)
  1. PHENOBARBITAL 65MG/ML [Suspect]
     Active Substance: PHENOBARBITAL
     Indication: PALLIATIVE CARE
     Route: 058
     Dates: start: 20200111, end: 20200114

REACTIONS (1)
  - Injection site discolouration [None]

NARRATIVE: CASE EVENT DATE: 20200114
